FAERS Safety Report 5990603-5 (Version None)
Quarter: 2008Q4

REPORT INFORMATION
  Report Type: 
  Country: None (occurrence: None)
  Receive Date: 20081211
  Receipt Date: 20081205
  Transmission Date: 20090506
  Serious: Yes (Hospitalization)
  Sender: FDA-Public Use
  Company Number: A0759302A

PATIENT
  Age: 37 Year
  Sex: Female

DRUGS (3)
  1. ACYCLOVIR [Suspect]
     Dosage: 200MG FOUR TIMES PER DAY
     Route: 048
     Dates: start: 20081006
  2. ABILIFY [Concomitant]
  3. LITHIUM [Concomitant]

REACTIONS (10)
  - DIARRHOEA [None]
  - DRUG EXPOSURE DURING PREGNANCY [None]
  - DYSGEUSIA [None]
  - INSOMNIA [None]
  - LACRIMATION INCREASED [None]
  - LIVE BIRTH [None]
  - PERIORBITAL OEDEMA [None]
  - SALIVARY HYPERSECRETION [None]
  - SWELLING FACE [None]
  - THIRST [None]
